FAERS Safety Report 4849764-3 (Version None)
Quarter: 2005Q4

REPORT INFORMATION
  Report Type: 
  Country: None (occurrence: None)
  Receive Date: 20051110
  Receipt Date: 20041006
  Transmission Date: 20060501
  Serious: No
  Sender: FDA-Public Use
  Company Number: 04H-163-0276817-00

PATIENT
  Sex: Male

DRUGS (1)
  1. DOBUTAMINE IN DEXTROSE 5% [Suspect]
     Indication: CARDIAC STRESS TEST
     Dosage: 10 MCG/KG/MIN, INTRAVENOUS; SEE IMAGE
     Route: 042

REACTIONS (1)
  - BLOOD PRESSURE INCREASED [None]
